FAERS Safety Report 6613745-X (Version None)
Quarter: 2010Q1

REPORT INFORMATION
  Report Type: 
  Country: None (occurrence: None)
  Receive Date: 20100225
  Receipt Date: 20090318
  Transmission Date: 20100710
  Serious: Yes (Other)
  Sender: FDA-Public Use
  Company Number: 622194

PATIENT
  Age: 27 Year
  Sex: Female

DRUGS (2)
  1. ACCUTANE [Suspect]
     Indication: ACNE CYSTIC
     Dosage: 20 MG 2 PER DAY
     Dates: start: 20010911, end: 20020201
  2. SOTRET [Suspect]
     Indication: ACNE CYSTIC
     Dosage: 40 MG 1 PER DAY ORAL
     Route: 048
     Dates: start: 20070501, end: 20070901

REACTIONS (12)
  - COLITIS ULCERATIVE [None]
  - CROHN'S DISEASE [None]
  - DEPRESSION [None]
  - DRY SKIN [None]
  - DYSPEPSIA [None]
  - GASTROOESOPHAGEAL REFLUX DISEASE [None]
  - INFLAMMATORY BOWEL DISEASE [None]
  - LIP BLISTER [None]
  - LIP DRY [None]
  - PROCTITIS [None]
  - RASH PAPULAR [None]
  - SLEEP APNOEA SYNDROME [None]
